FAERS Safety Report 23948203 (Version 1)
Quarter: 2024Q2

REPORT INFORMATION
  Report Type: Spontaneous
  Country: CN (occurrence: CN)
  Receive Date: 20240607
  Receipt Date: 20240607
  Transmission Date: 20240715
  Serious: Yes (Other)
  Sender: FDA-Public Use
  Company Number: CN-JNJFOC-20240602544

PATIENT
  Age: 3 Year
  Sex: Male
  Weight: 16.4 kg

DRUGS (2)
  1. CHILDRENS MOTRIN [Suspect]
     Active Substance: IBUPROFEN
     Indication: Pyrexia
     Dosage: ON 15-MAR-2024 13:34, AT 18:13 + ON 16-MAR-2024 8:01, 4 ML IBUPROFEN SUSPENSION ORALLY ADMINISTERED
     Route: 048
     Dates: start: 20240315, end: 20240316
  2. CHILDRENS MOTRIN [Suspect]
     Active Substance: IBUPROFEN
     Indication: Analgesic therapy

REACTIONS (2)
  - Off label use [Unknown]
  - Angioedema [Recovering/Resolving]

NARRATIVE: CASE EVENT DATE: 20240315
